FAERS Safety Report 20691838 (Version 2)
Quarter: 2022Q2

REPORT INFORMATION
  Report Type: Report from Study
  Country: PL (occurrence: PL)
  Receive Date: 20220408
  Receipt Date: 20220524
  Transmission Date: 20220721
  Serious: Yes (Hospitalization)
  Sender: FDA-Public Use
  Company Number: PL-ABBVIE-22P-129-4284688-00

PATIENT
  Age: 74 Year
  Sex: Male
  Weight: 79 kg

DRUGS (17)
  1. VENETOCLAX [Suspect]
     Active Substance: VENETOCLAX
     Indication: Myelodysplastic syndrome
     Dosage: DAYS 1 - 14 OF A 28-DAY CYCLE
     Route: 048
     Dates: start: 20201216
  2. AZACITIDINE [Suspect]
     Active Substance: AZACITIDINE
     Indication: Myelodysplastic syndrome
     Dosage: FOR 7 DAYS WITHIN THE FIRST 9 CALENDAR DAYS OF EACH 28-DAY CYCLE
     Route: 058
     Dates: start: 20201216
  3. BIOSOTAL [Concomitant]
     Indication: Coronary artery disease
     Route: 048
     Dates: start: 2017
  4. PREDNISONE [Concomitant]
     Active Substance: PREDNISONE
     Indication: Acute febrile neutrophilic dermatosis
     Route: 048
     Dates: start: 20201231
  5. OMEPRAZOLE SODIUM [Concomitant]
     Active Substance: OMEPRAZOLE SODIUM
     Indication: Prophylaxis against gastrointestinal ulcer
     Route: 048
     Dates: start: 20201231
  6. RAMIPRIL [Concomitant]
     Active Substance: RAMIPRIL
     Indication: Hypertension
     Route: 048
     Dates: start: 20201231
  7. TIALORID [Concomitant]
     Indication: Hypertension
     Route: 048
     Dates: start: 20210105
  8. VITAMIN D [Concomitant]
     Active Substance: VITAMIN D NOS
     Indication: Osteoporosis prophylaxis
     Route: 048
     Dates: start: 20201231
  9. ASMAG [Concomitant]
     Indication: Prophylaxis
     Route: 048
     Dates: start: 20200102
  10. POTASSIUM CHLORIDE [Concomitant]
     Active Substance: POTASSIUM CHLORIDE
     Indication: Prophylaxis
     Route: 048
     Dates: start: 20200107
  11. CALPEROS [Concomitant]
     Indication: Osteoporosis prophylaxis
     Route: 048
     Dates: start: 20210111
  12. BISOPROLOL [Concomitant]
     Active Substance: BISOPROLOL
     Indication: Coronary artery disease
     Route: 048
     Dates: start: 20210911
  13. PLAVIX [Concomitant]
     Active Substance: CLOPIDOGREL BISULFATE
     Indication: Coronary artery disease
     Route: 048
     Dates: start: 20210911
  14. LISINOPRIL [Concomitant]
     Active Substance: LISINOPRIL
     Indication: Hypertension
     Route: 048
     Dates: start: 20210911
  15. LISINOPRIL [Concomitant]
     Active Substance: LISINOPRIL
     Indication: Myocardial infarction
  16. ATORVASTATIN [Concomitant]
     Active Substance: ATORVASTATIN
     Indication: Myocardial infarction
     Route: 048
     Dates: start: 20210911
  17. AVAMINA SR 500 [Concomitant]
     Indication: Diabetes mellitus
     Route: 048
     Dates: start: 20210911

REACTIONS (1)
  - Pneumonia [Recovered/Resolved]

NARRATIVE: CASE EVENT DATE: 20220215
